FAERS Safety Report 4939238-3 (Version None)
Quarter: 2006Q1

REPORT INFORMATION
  Report Type: 
  Country: None (occurrence: None)
  Receive Date: 20060309
  Receipt Date: 20060309
  Transmission Date: 20060701
  Serious: Yes (Hospitalization)
  Sender: FDA-Public Use
  Company Number: None

PATIENT
  Age: 54 Year
  Sex: Male
  Weight: 92 kg

DRUGS (4)
  1. ERBITUX [Suspect]
     Indication: OROPHARYNGEAL CANCER STAGE UNSPECIFIED
     Dosage: 250    ONCE/WEEK   IV DRIP   (THERAPY DATES:  01/31/2006 - 03/28/2006)
     Route: 041
  2. TAXOL [Concomitant]
  3. CAROPLATIN [Concomitant]
  4. XRT [Concomitant]

REACTIONS (3)
  - CHEST PAIN [None]
  - DIZZINESS [None]
  - DRUG DOSE OMISSION [None]
